FAERS Safety Report 4555546-2 (Version None)
Quarter: 2005Q1

REPORT INFORMATION
  Report Type: 
  Country: None (occurrence: None)
  Receive Date: 20041223
  Receipt Date: 20040419
  Transmission Date: 20050727
  Serious: Yes (Other)
  Sender: FDA-Public Use
  Company Number: None

PATIENT
  Sex: Male

DRUGS (1)
  1. DEXTROSE 2.5% [Suspect]
     Indication: RENAL FAILURE
     Dosage: INTRAPERITONEALLY
     Route: 033
     Dates: end: 20040316

REACTIONS (1)
  - PERITONITIS [None]
